FAERS Safety Report 25479797 (Version 1)
Quarter: 2025Q2

REPORT INFORMATION
  Report Type: Spontaneous
  Country: PL (occurrence: PL)
  Receive Date: 20250625
  Receipt Date: 20250625
  Transmission Date: 20250717
  Serious: Yes (Other)
  Sender: FERRING
  Company Number: PL-BAYER-2025A078931

PATIENT

DRUGS (4)
  1. DEGARELIX [Suspect]
     Active Substance: DEGARELIX
     Indication: Product used for unknown indication
     Route: 065
     Dates: start: 20241001
  2. NUBEQA [Suspect]
     Active Substance: DAROLUTAMIDE
     Indication: Product used for unknown indication
     Route: 065
     Dates: start: 2025
  3. DOCETAXEL [Suspect]
     Active Substance: DOCETAXEL
     Indication: Product used for unknown indication
     Route: 065
     Dates: start: 20241202
  4. DOCETAXEL [Suspect]
     Active Substance: DOCETAXEL
     Route: 065
     Dates: end: 20250402

REACTIONS (3)
  - Metastases to lung [Unknown]
  - Granulocytopenia [Unknown]
  - Leukopenia [Unknown]

NARRATIVE: CASE EVENT DATE: 20250605
